FAERS Safety Report 25992138 (Version 1)
Quarter: 2025Q4

REPORT INFORMATION
  Report Type: Spontaneous
  Country: US (occurrence: US)
  Receive Date: 20251103
  Receipt Date: 20251103
  Transmission Date: 20260118
  Serious: No
  Sender: SANOFI AVENTIS
  Company Number: US-SA-2025SA321070

PATIENT
  Sex: Male

DRUGS (6)
  1. DUPIXENT [Suspect]
     Active Substance: DUPILUMAB
     Indication: Eosinophilic oesophagitis
     Dosage: 300MG QOW
     Route: 058
     Dates: start: 20240607
  2. ANUCORT-HC [Concomitant]
     Active Substance: HYDROCORTISONE ACETATE
     Dosage: UNK
  3. FAMOTIDINE [Concomitant]
     Active Substance: FAMOTIDINE
     Dosage: UNK
  4. FLUTICASONE [Concomitant]
     Active Substance: FLUTICASONE
     Dosage: UNK
  5. HYDROCORT [HYDROCORTISONE] [Concomitant]
  6. Bisoprolol + hidroclorotiazida [Concomitant]
     Dosage: 2.5/6.25

REACTIONS (1)
  - Drug ineffective [Unknown]
